FAERS Safety Report 4918707-6 (Version None)
Quarter: 2006Q1

REPORT INFORMATION
  Report Type: 
  Country: None (occurrence: None)
  Receive Date: 20060216
  Receipt Date: 20060207
  Transmission Date: 20060701
  Serious: Yes (Other)
  Sender: FDA-Public Use
  Company Number: CERZ-11111

PATIENT
  Age: 34 Year
  Sex: Male
  Weight: 161 kg

DRUGS (1)
  1. CEREZYME [Suspect]
     Indication: GAUCHER'S DISEASE
     Dosage: 2200 UNITS Q2WKS IV
     Route: 042
     Dates: start: 20051027

REACTIONS (9)
  - ABDOMINAL PAIN [None]
  - BLOOD PRESSURE INCREASED [None]
  - ERYTHEMA [None]
  - HEART RATE INCREASED [None]
  - INFUSION RELATED REACTION [None]
  - NAUSEA [None]
  - PRURITUS GENERALISED [None]
  - SKIN WARM [None]
  - URTICARIA GENERALISED [None]
